FAERS Safety Report 18564231 (Version 4)
Quarter: 2021Q1

REPORT INFORMATION
  Report Type: Spontaneous
  Country: JP (occurrence: JP)
  Receive Date: 20201201
  Receipt Date: 20210319
  Transmission Date: 20210419
  Serious: Yes (Other)
  Sender: FDA-Public Use
  Company Number: JP-PFIZER INC-2020465475

PATIENT
  Age: 15 Year
  Sex: Female
  Weight: 28 kg

DRUGS (6)
  1. PRECEDEX [Suspect]
     Active Substance: DEXMEDETOMIDINE HYDROCHLORIDE
     Indication: SEDATION
     Dosage: 0.4?0.7 UG/KG/H
     Route: 042
  2. FAMOTIDINE. [Concomitant]
     Active Substance: FAMOTIDINE
     Indication: PROPHYLAXIS
     Dosage: 20 MG, 2X/DAY
     Route: 042
     Dates: start: 20190909, end: 20190910
  3. ACELIO [Concomitant]
     Active Substance: ACETAMINOPHEN
     Indication: ANALGESIC THERAPY
     Dosage: 1600 MG, 4X/DAY (4 IN 1 DAY)
     Route: 042
     Dates: start: 20190909, end: 20190911
  4. PRECEDEX [Suspect]
     Active Substance: DEXMEDETOMIDINE HYDROCHLORIDE
     Dosage: 2.8?4.9 ML PER HOUR
     Route: 042
     Dates: start: 20190909, end: 20190910
  5. ATARAX?P [HYDROXYZINE HYDROCHLORIDE] [Concomitant]
     Indication: SEDATION
     Dosage: 25 MG, 1X/DAY
     Route: 042
     Dates: start: 20190909, end: 20190910
  6. FENTANYL. [Concomitant]
     Active Substance: FENTANYL
     Indication: ANALGESIC THERAPY
     Dosage: 0.4 MG, 1X/DAY (INTRAVENOUS NURSE?CONTROLLED ANALGESIA [IV?NCA]).
     Route: 042
     Dates: start: 20190909, end: 20190911

REACTIONS (4)
  - Hypokalaemia [Recovered/Resolved]
  - Polyuria [Recovered/Resolved]
  - Blood pressure decreased [Recovered/Resolved]
  - Diabetes insipidus [Recovering/Resolving]

NARRATIVE: CASE EVENT DATE: 20190909
